FAERS Safety Report 4692077-3 (Version None)
Quarter: 2005Q2

REPORT INFORMATION
  Report Type: 
  Country: None (occurrence: None)
  Receive Date: 20050614
  Receipt Date: 20050601
  Transmission Date: 20051028
  Serious: Yes (Death, Hospitalization, Other)
  Sender: FDA-Public Use
  Company Number: 2005BI007261

PATIENT
  Sex: Female

DRUGS (2)
  1. AVONEX [Suspect]
     Indication: MULTIPLE SCLEROSIS
     Dosage: IM
     Route: 030
     Dates: start: 20040903, end: 20050101
  2. ANTI-DEPRESSANTS [Concomitant]

REACTIONS (4)
  - AMNESIA [None]
  - BLOOD CHOLESTEROL INCREASED [None]
  - CERVIX CARCINOMA STAGE 0 [None]
  - SMEAR CERVIX ABNORMAL [None]
